FAERS Safety Report 9069080 (Version 1)
Quarter: 2013Q1

REPORT INFORMATION
  Report Type: Spontaneous
  Country: US (occurrence: None)
  Receive Date: 20130213
  Receipt Date: 20130213
  Transmission Date: 20140127
  Serious: Yes (Disabling, Other)
  Sender: FDA-Public Use
  Company Number: None

PATIENT
  Age: 61 Year
  Sex: Male
  Weight: 79.38 kg

DRUGS (2)
  1. LIORESAL [Suspect]
     Indication: MULTIPLE SCLEROSIS
     Dates: start: 20090101, end: 20121203
  2. LIORESAL [Suspect]
     Dates: start: 20121203, end: 20130118

REACTIONS (4)
  - Muscle disorder [None]
  - Impaired driving ability [None]
  - Impaired work ability [None]
  - Abasia [None]
